FAERS Safety Report 10150233 (Version 1)
Quarter: 2014Q2

REPORT INFORMATION
  Report Type: Spontaneous
  Country: FR (occurrence: FR)
  Receive Date: 20140502
  Receipt Date: 20140502
  Transmission Date: 20141212
  Serious: Yes (Death, Life-Threatening)
  Sender: FDA-Public Use
  Company Number: FR-JNJFOC-20140420529

PATIENT
  Age: 46 Year
  Sex: Male

DRUGS (9)
  1. SPORANOX [Suspect]
     Indication: ASPERGILLUS INFECTION
     Route: 048
     Dates: end: 20140327
  2. XARELTO [Interacting]
     Indication: ATRIAL FIBRILLATION
     Route: 048
     Dates: start: 20140321, end: 20140325
  3. MONO TILDIEM [Concomitant]
     Indication: HYPERTENSION
     Route: 048
     Dates: start: 20140318, end: 20140321
  4. ARIXTRA [Concomitant]
     Indication: PROPHYLAXIS
     Route: 042
     Dates: start: 20140318, end: 20140321
  5. CORDARONE [Concomitant]
     Indication: ATRIAL FIBRILLATION
     Route: 048
     Dates: start: 20140318, end: 20140321
  6. FLECAINE [Concomitant]
     Indication: HYPERTENSION
     Route: 048
     Dates: start: 20140321
  7. SOLUPRED [Concomitant]
     Indication: PRODUCT USED FOR UNKNOWN INDICATION
     Route: 048
     Dates: start: 2007, end: 20140328
  8. METFORMINE [Concomitant]
     Indication: PRODUCT USED FOR UNKNOWN INDICATION
     Route: 048
     Dates: end: 20140327
  9. LOXEN [Concomitant]
     Indication: PRODUCT USED FOR UNKNOWN INDICATION
     Route: 048
     Dates: end: 20140327

REACTIONS (4)
  - Haematoma [Fatal]
  - Shock haemorrhagic [Fatal]
  - Renal failure acute [Not Recovered/Not Resolved]
  - Drug interaction [Unknown]
